FAERS Safety Report 8841922 (Version 2)
Quarter: 2012Q4

REPORT INFORMATION
  Report Type: 
  Country: US (occurrence: US)
  Receive Date: 20121016
  Receipt Date: 20121128
  Transmission Date: 20130627
  Serious: Yes (Hospitalization)
  Sender: FDA-Public Use
  Company Number: US-BAYER-2012-105758

PATIENT
  Age: 50 Year
  Sex: Female

DRUGS (12)
  1. OCELLA [Suspect]
  2. YAZ [Suspect]
  3. AMOXICILLIN [Concomitant]
  4. PREDNISONE [Concomitant]
  5. DRUGS FOR OBSTRUCTIVE AIRWAY DISEASES [Concomitant]
  6. ROPINIROLE [Concomitant]
     Dosage: 2 mg, UNK
     Dates: start: 20101019
  7. ROPINIROLE [Concomitant]
     Dosage: 1 mg, UNK
     Dates: start: 20101020
  8. ACETYLCYSTEINE [Concomitant]
     Dosage: UNK
     Dates: start: 20101020
  9. AZITHROMYCIN [Concomitant]
     Dosage: UNK
     Dates: start: 20101020
  10. ACETAMINOPHEN [Concomitant]
     Dosage: UNK
     Dates: start: 20101019
  11. LEVALBUTEROL [Concomitant]
     Dosage: UNK
     Dates: start: 20101020
  12. REQUIP [Concomitant]

REACTIONS (2)
  - Pulmonary embolism [None]
  - Deep vein thrombosis [Recovered/Resolved]
